FAERS Safety Report 26058166 (Version 2)
Quarter: 2025Q4

REPORT INFORMATION
  Report Type: Spontaneous
  Country: US (occurrence: US)
  Receive Date: 20251118
  Receipt Date: 20251122
  Transmission Date: 20260118
  Serious: No
  Sender: SANDOZ
  Company Number: US-SANDOZ-SDZ2025US085345

PATIENT
  Sex: Female

DRUGS (1)
  1. JUBBONTI [Suspect]
     Active Substance: DENOSUMAB-BBDZ
     Indication: Osteoporosis
     Dosage: STRENGTH-60MG  /1ML
     Route: 058
     Dates: start: 20251005

REACTIONS (4)
  - Muscular weakness [Recovering/Resolving]
  - Mood altered [Recovering/Resolving]
  - Nausea [Recovering/Resolving]
  - Palpitations [Recovering/Resolving]

NARRATIVE: CASE EVENT DATE: 20251001
